FAERS Safety Report 5600891-2 (Version None)
Quarter: 2007Q4

REPORT INFORMATION
  Report Type: 
  Country: None (occurrence: None)
  Receive Date: 20071228
  Receipt Date: 20070831
  Transmission Date: 20080405
  Serious: Yes (Other)
  Sender: FDA-Public Use
  Company Number: 20070278

PATIENT
  Age: 22 Year
  Sex: Female
  Weight: 99.7913 kg

DRUGS (1)
  1. VENOFER [Suspect]
     Indication: IRON DEFICIENCY
     Dosage: 500 MG EVERY 14 DAYS INTRAVENOUS
     Route: 042
     Dates: start: 20070817

REACTIONS (2)
  - ANAPHYLACTOID REACTION [None]
  - CHROMATURIA [None]
